FAERS Safety Report 25751609 (Version 1)
Quarter: 2025Q3

REPORT INFORMATION
  Report Type: Spontaneous
  Country: US (occurrence: None)
  Receive Date: 20250902
  Receipt Date: 20250902
  Transmission Date: 20251021
  Serious: Yes (Hospitalization)
  Sender: FDA-CTU
  Company Number: None

PATIENT
  Age: 42 Year
  Sex: Female

DRUGS (1)
  1. GLATOPA [Suspect]
     Active Substance: GLATIRAMER ACETATE
     Indication: Multiple sclerosis
     Dosage: OTHER FREQUENCY : 3 TIMES PER WEEK;?
     Route: 058
     Dates: start: 20250604, end: 20250711

REACTIONS (5)
  - Injection site erythema [None]
  - Injection site pruritus [None]
  - Injection site pain [None]
  - Headache [None]
  - Optic neuritis [None]

NARRATIVE: CASE EVENT DATE: 20250711
